FAERS Safety Report 9024610 (Version 2)
Quarter: 2013Q1

REPORT INFORMATION
  Report Type: Spontaneous
  Country: US (occurrence: US)
  Receive Date: 20130121
  Receipt Date: 20130215
  Transmission Date: 20140127
  Serious: No
  Sender: FDA-Public Use
  Company Number: US-009507513-1301USA006017

PATIENT
  Sex: 0

DRUGS (2)
  1. EMEND [Suspect]
     Route: 042
  2. DOXORUBICIN [Concomitant]

REACTIONS (2)
  - Injection site erythema [Unknown]
  - Injection site pain [Unknown]
